FAERS Safety Report 6547747-9 (Version None)
Quarter: 2010Q1

REPORT INFORMATION
  Report Type: 
  Country: None (occurrence: None)
  Receive Date: 20100124
  Receipt Date: 20091002
  Transmission Date: 20100710
  Serious: No
  Sender: FDA-Public Use
  Company Number: US-ALEXION-A200900808

PATIENT
  Sex: Female
  Weight: 65.76 kg

DRUGS (5)
  1. SOLIRIS [Suspect]
     Indication: PAROXYSMAL NOCTURNAL HAEMOGLOBINURIA
     Dosage: 600 MG, QW
     Route: 042
     Dates: start: 20090716, end: 20090806
  2. SOLIRIS [Suspect]
     Dosage: 900 MG, Q2W
     Route: 042
     Dates: start: 20090820
  3. WARFARIN [Concomitant]
     Dosage: 5 MG, QD
     Route: 048
  4. AMBIEN [Concomitant]
     Dosage: 5 MG, QD
     Route: 048
  5. BENADRYL [Concomitant]
     Indication: PREMEDICATION
     Dosage: 25 MG, PRE-SOLIRIS
     Route: 042
     Dates: start: 20090716

REACTIONS (2)
  - FEELING ABNORMAL [None]
  - INFUSION RELATED REACTION [None]
